FAERS Safety Report 11177361 (Version 1)
Quarter: 2015Q2

REPORT INFORMATION
  Report Type: Spontaneous
  Country: US (occurrence: None)
  Receive Date: 20150608
  Receipt Date: 20150608
  Transmission Date: 20150821
  Serious: Yes (Hospitalization)
  Sender: FDA-Public Use
  Company Number: None

PATIENT
  Age: 43 Year
  Sex: Female
  Weight: 194.59 kg

DRUGS (13)
  1. LASIX [Concomitant]
     Active Substance: FUROSEMIDE
  2. BABY ASPIRIN [Concomitant]
     Active Substance: ASPIRIN
  3. OMAPROZAL [Concomitant]
  4. CPAP [Concomitant]
     Active Substance: DEVICE
  5. VITAMIN D [Concomitant]
     Active Substance: CHOLECALCIFEROL
  6. ALPRAZOLAM. [Concomitant]
     Active Substance: ALPRAZOLAM
  7. METROLOL [Concomitant]
  8. ALPRAZOLAM. [Suspect]
     Active Substance: ALPRAZOLAM
     Indication: PANIC DISORDER
     Dosage: 1 PILL DAILY IF NEEDED TAKEN BY MOUTH
     Route: 048
     Dates: start: 20150301, end: 20150604
  9. ZOLOFT [Concomitant]
     Active Substance: SERTRALINE HYDROCHLORIDE
  10. FLONASE [Concomitant]
     Active Substance: FLUTICASONE PROPIONATE
  11. ANNORO ELLIPTA [Concomitant]
  12. POTASSIUM [Concomitant]
     Active Substance: POTASSIUM
  13. SYNTHROID [Concomitant]
     Active Substance: LEVOTHYROXINE SODIUM

REACTIONS (2)
  - Dyspepsia [None]
  - Pain [None]

NARRATIVE: CASE EVENT DATE: 20150604
